FAERS Safety Report 12221458 (Version 1)
Quarter: 2016Q1

REPORT INFORMATION
  Report Type: Spontaneous
  Country: US (occurrence: US)
  Receive Date: 20160330
  Receipt Date: 20160330
  Transmission Date: 20160526
  Serious: Yes (Hospitalization, Other)
  Sender: FDA-Public Use
  Company Number: US-ELI_LILLY_AND_COMPANY-US201603007335

PATIENT
  Sex: Female

DRUGS (8)
  1. LISINOPRIL. [Concomitant]
     Active Substance: LISINOPRIL
  2. FOLIC ACID GENERIC [Concomitant]
  3. POTASSIUM CHLORIDE. [Concomitant]
     Active Substance: POTASSIUM CHLORIDE
  4. COREG [Concomitant]
     Active Substance: CARVEDILOL
  5. ALDACTONE [Concomitant]
     Active Substance: SPIRONOLACTONE
  6. ASPIRIN                            /00002701/ [Concomitant]
     Active Substance: ASPIRIN
  7. TORSEMIDE. [Concomitant]
     Active Substance: TORSEMIDE
  8. ZYPREXA [Suspect]
     Active Substance: OLANZAPINE
     Indication: AUTISM
     Dosage: 5 MG, BID
     Route: 065

REACTIONS (4)
  - Visual impairment [Unknown]
  - Cardiac failure [Unknown]
  - Blood uric acid increased [Unknown]
  - Off label use [Unknown]
